FAERS Safety Report 8820796 (Version 1)
Quarter: 2012Q4

REPORT INFORMATION
  Report Type: 
  Country: CA (occurrence: CA)
  Receive Date: 20121002
  Receipt Date: 20121002
  Transmission Date: 20130627
  Serious: Yes (Other)
  Sender: FDA-Public Use
  Company Number: CA-B.I. PHARMACEUTICALS,INC./RIDGEFIELD-2012-CN-01963CN

PATIENT
  Age: 49 Year
  Sex: Female

DRUGS (1)
  1. MICARDIS [Suspect]
     Dosage: 80 mg
     Route: 048

REACTIONS (2)
  - Convulsion [Recovered/Resolved]
  - Grand mal convulsion [Recovered/Resolved]
